FAERS Safety Report 24622450 (Version 1)
Quarter: 2024Q4

REPORT INFORMATION
  Report Type: Spontaneous
  Country: US (occurrence: US)
  Receive Date: 20241115
  Receipt Date: 20241115
  Transmission Date: 20250115
  Serious: No
  Sender: ALEXION PHARMACEUTICALS
  Company Number: US-AstraZeneca-CH-00717177AP

PATIENT
  Age: 76 Year

DRUGS (4)
  1. BYDUREON BCISE [Suspect]
     Active Substance: EXENATIDE
  2. BYDUREON BCISE [Suspect]
     Active Substance: EXENATIDE
  3. BYDUREON BCISE [Suspect]
     Active Substance: EXENATIDE
  4. BYDUREON BCISE [Suspect]
     Active Substance: EXENATIDE

REACTIONS (3)
  - Injection site haemorrhage [Unknown]
  - Incorrect dose administered by device [Unknown]
  - Needle issue [Unknown]
